FAERS Safety Report 12809971 (Version 1)
Quarter: 2016Q4

REPORT INFORMATION
  Report Type: Spontaneous
  Country: US (occurrence: US)
  Receive Date: 20161004
  Receipt Date: 20161004
  Transmission Date: 20170207
  Serious: Yes (Hospitalization, Other)
  Sender: FDA-Public Use
  Company Number: None

PATIENT
  Sex: Female
  Weight: 64.9 kg

DRUGS (1)
  1. BACTRIM DS [Suspect]
     Active Substance: SULFAMETHOXAZOLE\TRIMETHOPRIM
     Indication: CELLULITIS
     Route: 048
     Dates: start: 20160923, end: 20161002

REACTIONS (9)
  - Ecchymosis [None]
  - Platelet count decreased [None]
  - Blood urea increased [None]
  - Blood creatinine increased [None]
  - Rash [None]
  - Blister [None]
  - Haemolytic uraemic syndrome [None]
  - Thrombocytopenia [None]
  - Burning sensation [None]

NARRATIVE: CASE EVENT DATE: 20161003
